FAERS Safety Report 5138368-3 (Version None)
Quarter: 2006Q4

REPORT INFORMATION
  Report Type: 
  Country: None (occurrence: None)
  Receive Date: 20061024
  Receipt Date: 20061011
  Transmission Date: 20070319
  Serious: Yes (Other)
  Sender: FDA-Public Use
  Company Number: 231047

PATIENT
  Age: 23 Year
  Sex: Female
  Weight: 63.5 kg

DRUGS (1)
  1. RITUXAN [Suspect]
     Indication: SYSTEMIC LUPUS ERYTHEMATOSUS
     Dosage: X2, INTRAVENOUS
     Route: 042
     Dates: start: 20051001

REACTIONS (7)
  - ARTHRALGIA [None]
  - BACK PAIN [None]
  - HYPOTHYROIDISM [None]
  - INADEQUATE ANALGESIA [None]
  - PAIN IN EXTREMITY [None]
  - SPINAL DISORDER [None]
  - WEIGHT INCREASED [None]
